FAERS Safety Report 8062967-2 (Version None)
Quarter: 2011Q4

REPORT INFORMATION
  Report Type: 
  Country: None (occurrence: None)
  Receive Date: 20111221
  Receipt Date: 20110613
  Transmission Date: 20120403
  Serious: Yes (Hospitalization)
  Sender: FDA-Public Use
  Company Number: PHHY2011US51770

PATIENT
  Age: 79 Year
  Sex: Female
  Weight: 45.8 kg

DRUGS (1)
  1. EXJADE [Suspect]
     Indication: IRON OVERLOAD
     Dosage: 1250 MG, QD , ORAL
     Route: 048
     Dates: start: 20060503

REACTIONS (1)
  - FATIGUE [None]
